FAERS Safety Report 10430935 (Version 1)
Quarter: 2014Q3

REPORT INFORMATION
  Report Type: Spontaneous
  Country: JP (occurrence: JP)
  Receive Date: 20140904
  Receipt Date: 20140904
  Transmission Date: 20150326
  Serious: Yes (Death, Disabling)
  Sender: FDA-Public Use
  Company Number: PHHY2011JP122493

PATIENT
  Age: 81 Year
  Sex: Female

DRUGS (1)
  1. GLIVEC [Suspect]
     Active Substance: IMATINIB MESYLATE
     Indication: ACUTE LYMPHOCYTIC LEUKAEMIA
     Dosage: 600 MG, DAILY
     Dates: start: 201006

REACTIONS (8)
  - Generalised oedema [Fatal]
  - Bone marrow failure [Fatal]
  - Pneumonia [Fatal]
  - Pyrexia [Fatal]
  - Respiratory disorder [Fatal]
  - Haematemesis [Fatal]
  - Melaena [Fatal]
  - White blood cell count increased [Fatal]
